FAERS Safety Report 8875561 (Version 2)
Quarter: 2013Q2

REPORT INFORMATION
  Report Type: Spontaneous
  Country: BR (occurrence: BR)
  Receive Date: 20121023
  Receipt Date: 20130402
  Transmission Date: 20140414
  Serious: Yes (Hospitalization, Other)
  Sender: FDA-Public Use
  Company Number: PHHY2012BR094003

PATIENT
  Age: 58 Year
  Sex: Female

DRUGS (2)
  1. FORASEQ [Suspect]
     Indication: DYSPNOEA
     Dosage: 1CAPSULE BID
     Dates: start: 201211, end: 201211
  2. DIENPAX [Concomitant]
     Indication: SLEEP DISORDER
     Dosage: 10 MG, 1TABLET
     Route: 048

REACTIONS (1)
  - Lung neoplasm malignant [Recovering/Resolving]
